FAERS Safety Report 16215030 (Version 1)
Quarter: 2019Q2

REPORT INFORMATION
  Report Type: Spontaneous
  Country: AT (occurrence: AT)
  Receive Date: 20190418
  Receipt Date: 20190418
  Transmission Date: 20190711
  Serious: Yes (Death)
  Sender: FDA-Public Use
  Company Number: AT-CELLTRION INC.-2019AT020378

PATIENT

DRUGS (24)
  1. RITUXIMAB (UNKNOWN) [Suspect]
     Active Substance: RITUXIMAB
     Indication: DIFFUSE LARGE B-CELL LYMPHOMA
     Dosage: UNK
     Route: 065
  2. DOXORUBICIN [Suspect]
     Active Substance: DOXORUBICIN
     Indication: RECURRENT CANCER
     Dosage: UNK
  3. RITUXIMAB (UNKNOWN) [Suspect]
     Active Substance: RITUXIMAB
     Indication: LEUKAEMIC LYMPHOMA
     Dosage: UNK
  4. CYCLOPHOSPHAMIDE. [Suspect]
     Active Substance: CYCLOPHOSPHAMIDE
     Indication: LEUKAEMIC LYMPHOMA
     Dosage: UNK
  5. CYCLOPHOSPHAMIDE. [Suspect]
     Active Substance: CYCLOPHOSPHAMIDE
     Indication: SECOND PRIMARY MALIGNANCY
     Dosage: UNK
  6. RITUXIMAB (UNKNOWN) [Suspect]
     Active Substance: RITUXIMAB
     Indication: SECOND PRIMARY MALIGNANCY
     Dosage: UNK
  7. FEDRATINIB [Suspect]
     Active Substance: FEDRATINIB
     Indication: PRIMARY MYELOFIBROSIS
     Dosage: UNK
     Route: 065
  8. DOXORUBICIN [Suspect]
     Active Substance: DOXORUBICIN
     Indication: DIFFUSE LARGE B-CELL LYMPHOMA
     Dosage: UNK
     Route: 065
  9. CYCLOPHOSPHAMIDE. [Suspect]
     Active Substance: CYCLOPHOSPHAMIDE
     Indication: DIFFUSE LARGE B-CELL LYMPHOMA
     Dosage: UNK
     Route: 065
  10. PREDNISONE. [Suspect]
     Active Substance: PREDNISONE
     Indication: RECURRENT CANCER
     Dosage: UNK
  11. PREDNISONE. [Suspect]
     Active Substance: PREDNISONE
     Indication: SECOND PRIMARY MALIGNANCY
     Dosage: UNK
  12. FEDRATINIB [Suspect]
     Active Substance: FEDRATINIB
     Indication: RECURRENT CANCER
     Dosage: UNK
  13. DOXORUBICIN [Suspect]
     Active Substance: DOXORUBICIN
     Indication: LEUKAEMIC LYMPHOMA
     Dosage: UNK
  14. DOXORUBICIN [Suspect]
     Active Substance: DOXORUBICIN
     Indication: SECOND PRIMARY MALIGNANCY
     Dosage: UNK
  15. VINCRISTINE [Suspect]
     Active Substance: VINCRISTINE
     Indication: SECOND PRIMARY MALIGNANCY
     Dosage: UNK
  16. PREDNISONE. [Suspect]
     Active Substance: PREDNISONE
     Indication: DIFFUSE LARGE B-CELL LYMPHOMA
     Dosage: UNK
     Route: 065
  17. RITUXIMAB (UNKNOWN) [Suspect]
     Active Substance: RITUXIMAB
     Indication: RECURRENT CANCER
     Dosage: UNK
  18. VINCRISTINE [Suspect]
     Active Substance: VINCRISTINE
     Indication: DIFFUSE LARGE B-CELL LYMPHOMA
     Dosage: UNK
     Route: 065
  19. PREDNISONE. [Suspect]
     Active Substance: PREDNISONE
     Indication: LEUKAEMIC LYMPHOMA
  20. FEDRATINIB [Suspect]
     Active Substance: FEDRATINIB
     Indication: LEUKAEMIC LYMPHOMA
     Dosage: UNK
  21. CYCLOPHOSPHAMIDE. [Suspect]
     Active Substance: CYCLOPHOSPHAMIDE
     Indication: RECURRENT CANCER
     Dosage: UNK
  22. VINCRISTINE [Suspect]
     Active Substance: VINCRISTINE
     Indication: LEUKAEMIC LYMPHOMA
     Dosage: UNK
  23. VINCRISTINE [Suspect]
     Active Substance: VINCRISTINE
     Indication: RECURRENT CANCER
     Dosage: UNK
  24. RUXOLITINIB [Suspect]
     Active Substance: RUXOLITINIB
     Indication: PRIMARY MYELOFIBROSIS
     Dosage: UNK
     Route: 065

REACTIONS (3)
  - Leukaemic lymphoma [Fatal]
  - Second primary malignancy [Fatal]
  - Diffuse large B-cell lymphoma [Fatal]
